FAERS Safety Report 6518663-3 (Version None)
Quarter: 2009Q4

REPORT INFORMATION
  Report Type: 
  Country: None (occurrence: None)
  Receive Date: 20091228
  Receipt Date: 20091217
  Transmission Date: 20100525
  Serious: Yes (Other)
  Sender: FDA-Public Use
  Company Number: KR-ROCHE-672703

PATIENT
  Sex: Female
  Weight: 57 kg

DRUGS (1)
  1. BONIVA [Suspect]
     Indication: OSTEOPOROSIS POSTMENOPAUSAL
     Route: 048
     Dates: start: 20090810

REACTIONS (2)
  - MUSCLE HYPERTROPHY [None]
  - MUSCULOSKELETAL DISORDER [None]
